FAERS Safety Report 8800884 (Version 1)
Quarter: 2012Q4

REPORT INFORMATION
  Report Type: 
  Country: FR (occurrence: FR)
  Receive Date: 20120921
  Receipt Date: 20120921
  Transmission Date: 20130627
  Serious: Yes (Hospitalization)
  Sender: FDA-Public Use
  Company Number: FR-PFIZER INC-2012230508

PATIENT
  Age: 1 Year
  Sex: Female
  Weight: 11.7 kg

DRUGS (3)
  1. ADVIL [Suspect]
     Indication: EAR INFECTION
     Dosage: 1 DF, single
     Route: 048
     Dates: start: 20111220, end: 20111220
  2. AMOXICILLIN SODIUM [Suspect]
     Indication: EAR INFECTION
     Dosage: UNK
     Route: 048
     Dates: start: 20111220, end: 20111221
  3. PARACETAMOL [Suspect]
     Indication: PYREXIA
     Dosage: UNK
     Route: 048
     Dates: start: 201112, end: 201112

REACTIONS (2)
  - Tubulointerstitial nephritis [Recovered/Resolved]
  - Renal failure acute [Recovered/Resolved]
